FAERS Safety Report 17049097 (Version 3)
Quarter: 2019Q4

REPORT INFORMATION
  Report Type: Report from Study
  Country: DE (occurrence: DE)
  Receive Date: 20191119
  Receipt Date: 20191220
  Transmission Date: 20200122
  Serious: Yes (Other)
  Sender: FDA-Public Use
  Company Number: DE-PFIZER INC-2019494840

PATIENT
  Age: 10 Year
  Sex: Male

DRUGS (11)
  1. NATRIUMGLYCEROPHOSPHAT [Concomitant]
     Indication: PHOSPHORUS METABOLISM DISORDER
     Dosage: (4X) 5 ML, QD
     Route: 048
     Dates: start: 20081013, end: 20170817
  2. SOMATROPIN. [Suspect]
     Active Substance: SOMATROPIN
     Indication: HEREDITARY HYPOPHOSPHATAEMIC RICKETS
     Dosage: 1.8 MG, QD (10 MG/1.5 ML SOLUTION FOR INJECTION)
     Route: 058
     Dates: start: 20100909
  3. SOMATROPIN. [Suspect]
     Active Substance: SOMATROPIN
     Dosage: 0.5 MG, QD
     Route: 058
     Dates: start: 201812
  4. SOMATROPIN. [Suspect]
     Active Substance: SOMATROPIN
     Dosage: 1.0 MG, QD
     Route: 058
     Dates: start: 20100909
  5. MIMPARA [Concomitant]
     Active Substance: CINACALCET HYDROCHLORIDE
     Indication: PROPHYLAXIS
     Dosage: 10 MG, QD
     Route: 048
     Dates: start: 20100204, end: 20170824
  6. VIGANTOLETTEN [Concomitant]
     Active Substance: CHOLECALCIFEROL
     Indication: PROPHYLAXIS
  7. EINSALPHA [Concomitant]
     Indication: PHOSPHORUS METABOLISM DISORDER
     Dosage: 2 UG/ML, UNK
     Route: 048
     Dates: start: 20120124, end: 20170824
  8. VIGANTOLETTEN [Concomitant]
     Active Substance: CHOLECALCIFEROL
     Indication: HEREDITARY HYPOPHOSPHATAEMIC RICKETS
     Dosage: 1 DF, QD
     Route: 048
     Dates: start: 20081013, end: 20131128
  9. ROCALTROL [Concomitant]
     Active Substance: CALCITRIOL
     Indication: PROPHYLAXIS
     Dosage: 0.2 UG, QD
     Route: 048
     Dates: start: 20090129, end: 20111020
  10. LECITHIN [Concomitant]
     Active Substance: LECITHIN
     Indication: PROPHYLAXIS
     Dosage: UNK
     Route: 048
     Dates: start: 20130320, end: 20170824
  11. BUROSUMAB [Concomitant]
     Active Substance: BUROSUMAB
     Indication: PHOSPHORUS METABOLISM DISORDER
     Dosage: 20 MG, EVERY 14 DAYS
     Route: 058
     Dates: start: 20170824

REACTIONS (2)
  - Headache [Not Recovered/Not Resolved]
  - Idiopathic intracranial hypertension [Recovering/Resolving]

NARRATIVE: CASE EVENT DATE: 201702
